FAERS Safety Report 6120328-7 (Version None)
Quarter: 2009Q1

REPORT INFORMATION
  Report Type: 
  Country: None (occurrence: None)
  Receive Date: 20090312
  Receipt Date: 20090312
  Transmission Date: 20090719
  Serious: No
  Sender: FDA-Public Use
  Company Number: None

PATIENT
  Sex: Male
  Weight: 93.8946 kg

DRUGS (3)
  1. RAMIPRIL [Suspect]
     Indication: CORONARY ARTERY DISEASE
     Dosage: 10MG TAKE ONCE PO QD PO 2-3 WKS
     Route: 048
  2. RAMIPRIL [Suspect]
     Indication: HYPERTENSION
     Dosage: 10MG TAKE ONCE PO QD PO 2-3 WKS
     Route: 048
  3. RAMIPRIL [Suspect]
     Indication: ISCHAEMIC CARDIOMYOPATHY
     Dosage: 10MG TAKE ONCE PO QD PO 2-3 WKS
     Route: 048

REACTIONS (2)
  - DIZZINESS [None]
  - PRODUCT QUALITY ISSUE [None]
